FAERS Safety Report 17734763 (Version 1)
Quarter: 2020Q2

REPORT INFORMATION
  Report Type: Spontaneous
  Country: IT (occurrence: IT)
  Receive Date: 20200501
  Receipt Date: 20200501
  Transmission Date: 20200714
  Serious: Yes (Hospitalization)
  Sender: FDA-Public Use
  Company Number: IT-FRESENIUS KABI-FK202004346

PATIENT
  Age: 60 Year
  Sex: Female
  Weight: 79 kg

DRUGS (3)
  1. ABEMACICLIB [Suspect]
     Active Substance: ABEMACICLIB
     Indication: BREAST CANCER
     Route: 048
     Dates: start: 20200219, end: 20200303
  2. FULVESTRANT INJECTION (MANUFACTURER UNKNOWN) [Suspect]
     Active Substance: FULVESTRANT
     Indication: BREAST CANCER
     Dosage: 500 FL
     Route: 030
     Dates: start: 20200217
  3. FULVESTRANT INJECTION (MANUFACTURER UNKNOWN) [Suspect]
     Active Substance: FULVESTRANT
     Dosage: 500 FL
     Route: 030
     Dates: start: 20200303, end: 20200303

REACTIONS (2)
  - Coronavirus infection [Recovered/Resolved]
  - Pneumonia [Recovered/Resolved]
